FAERS Safety Report 9002328 (Version 1)
Quarter: 2012Q4

REPORT INFORMATION
  Report Type: Spontaneous
  Country: US (occurrence: None)
  Receive Date: 20121211
  Receipt Date: 20121211
  Transmission Date: 20130627
  Serious: Yes (Hospitalization, Other)
  Sender: FDA-Public Use
  Company Number: 142776

PATIENT
  Age: 60 Year
  Sex: Male

DRUGS (1)
  1. DILTIAZEM HCL [Suspect]
     Route: 048

REACTIONS (7)
  - Medication error [None]
  - Overdose [None]
  - Suicide attempt [None]
  - Hypotension [None]
  - Bradycardia [None]
  - Electrocardiogram QT prolonged [None]
  - Atrioventricular block [None]
